FAERS Safety Report 5063551-5 (Version None)
Quarter: 2006Q3

REPORT INFORMATION
  Report Type: 
  Country: None (occurrence: None)
  Receive Date: 20060727
  Receipt Date: 20060718
  Transmission Date: 20061208
  Serious: Yes (Hospitalization)
  Sender: FDA-Public Use
  Company Number: PHRM2006FR02159

PATIENT
  Age: 84 Year
  Sex: Female
  Weight: 70 kg

DRUGS (8)
  1. STALEVO 100 [Suspect]
     Indication: PARKINSON'S DISEASE
     Dosage: 200/100/25 MG X3/DAY
     Route: 048
     Dates: start: 20060214, end: 20060603
  2. DEROXAT [Suspect]
     Indication: DYSTHYMIC DISORDER
     Dosage: 20 MG, QD
     Route: 048
     Dates: start: 20060503
  3. LAROXYL [Concomitant]
     Indication: DYSTHYMIC DISORDER
     Dosage: 50 MG, QD
     Route: 048
     Dates: start: 20030101
  4. LIPANTHYL ^FOURNIER^ [Concomitant]
     Indication: HYPERCHOLESTEROLAEMIA
     Dosage: 160 MG, QD
     Route: 048
     Dates: start: 20030101
  5. SERESTA [Concomitant]
     Indication: DYSTHYMIC DISORDER
     Dosage: 10 MG, QID
     Route: 048
     Dates: start: 20030101
  6. DAFALGAN [Concomitant]
     Indication: PAIN
     Dosage: UNK, UNK
     Route: 048
     Dates: start: 20030101
  7. VASTAREL [Concomitant]
     Dosage: 2 DF/DAY
     Route: 048
     Dates: start: 20040101
  8. NOVONORM [Concomitant]
     Dosage: 1 MG, QD
     Dates: start: 20030101

REACTIONS (2)
  - EPISTAXIS [None]
  - SKIN HAEMORRHAGE [None]
